FAERS Safety Report 6903547-9 (Version None)
Quarter: 2010Q3

REPORT INFORMATION
  Report Type: 
  Country: None (occurrence: None)
  Receive Date: 20100803
  Receipt Date: 20081022
  Transmission Date: 20110219
  Serious: No
  Sender: FDA-Public Use
  Company Number: US-PFIZER INC-2008089173

PATIENT
  Sex: Male
  Weight: 81.8 kg

DRUGS (4)
  1. LYRICA [Suspect]
     Indication: BACK PAIN
     Dates: start: 20080801
  2. LYRICA [Suspect]
     Indication: SPINAL COLUMN STENOSIS
  3. LYRICA [Suspect]
     Indication: SURGERY
  4. VICOPROFEN [Concomitant]

REACTIONS (3)
  - ABDOMINAL DISCOMFORT [None]
  - CONSTIPATION [None]
  - HYPERCHLORHYDRIA [None]
